FAERS Safety Report 6275090-4 (Version None)
Quarter: 2009Q3

REPORT INFORMATION
  Report Type: 
  Country: None (occurrence: None)
  Receive Date: 20090721
  Receipt Date: 20090708
  Transmission Date: 20100115
  Serious: Yes (Other)
  Sender: FDA-Public Use
  Company Number: PHHY2008JP33324

PATIENT
  Sex: Female
  Weight: 33 kg

DRUGS (3)
  1. ZOMETA [Suspect]
     Dosage: 4 MG
     Route: 042
     Dates: start: 20081016
  2. FEMARA [Suspect]
     Dosage: 25 MG/DAY
     Route: 048
     Dates: start: 20060601
  3. PREDNISOLONE [Concomitant]
     Dosage: 10 MG/DAY
     Route: 048
     Dates: start: 20050301

REACTIONS (2)
  - BONE PAIN [None]
  - TOOTH LOSS [None]
